FAERS Safety Report 4884368-8 (Version None)
Quarter: 2006Q1

REPORT INFORMATION
  Report Type: 
  Country: None (occurrence: None)
  Receive Date: 20060117
  Receipt Date: 20060117
  Transmission Date: 20060701
  Serious: Yes (Hospitalization)
  Sender: FDA-Public Use
  Company Number: None

PATIENT
  Age: 61 Year
  Sex: Female

DRUGS (9)
  1. TEQUIN [Suspect]
     Indication: INFECTION
     Dosage: 200 MG X 1 IV
     Route: 042
     Dates: start: 20050609
  2. TEQUIN [Suspect]
     Indication: PYREXIA
     Dosage: 200 MG X 1 IV
     Route: 042
     Dates: start: 20050609
  3. NEURONTIN [Concomitant]
  4. METOPROLOL [Concomitant]
  5. PLAVIX [Concomitant]
  6. ZOLOFT [Concomitant]
  7. GLUCOTROL [Concomitant]
  8. ELAVIL [Concomitant]
  9. XANAX [Concomitant]

REACTIONS (1)
  - HYPOGLYCAEMIA [None]
